FAERS Safety Report 9520565 (Version 1)
Quarter: 2013Q3

REPORT INFORMATION
  Report Type: Spontaneous
  Country: US (occurrence: US)
  Receive Date: 20130913
  Receipt Date: 20130913
  Transmission Date: 20140515
  Serious: Yes (Hospitalization)
  Sender: FDA-Public Use
  Company Number: US-BIOGENIDEC-2013BI085069

PATIENT
  Age: 51 Year
  Sex: Female

DRUGS (1)
  1. AVONEX [Suspect]
     Indication: MULTIPLE SCLEROSIS
     Route: 030
     Dates: start: 20110513

REACTIONS (9)
  - Pancreatic steatosis [Recovered/Resolved]
  - Multiple sclerosis relapse [Recovered/Resolved]
  - Osteoporosis [Not Recovered/Not Resolved]
  - Infected bites [Recovered/Resolved]
  - Musculoskeletal disorder [Not Recovered/Not Resolved]
  - Influenza like illness [Not Recovered/Not Resolved]
  - Myalgia [Not Recovered/Not Resolved]
  - Hypersomnia [Recovered/Resolved]
  - Flushing [Recovered/Resolved]
